FAERS Safety Report 18100349 (Version 1)
Quarter: 2020Q3

REPORT INFORMATION
  Report Type: Spontaneous
  Country: IN (occurrence: IN)
  Receive Date: 20200801
  Receipt Date: 20200801
  Transmission Date: 20201103
  Serious: Yes (Other)
  Sender: FDA-Public Use
  Company Number: IN-SUN PHARMACEUTICAL INDUSTRIES LTD-2020R1-255736

PATIENT
  Sex: Male

DRUGS (1)
  1. CALCITRIOL. [Suspect]
     Active Substance: CALCITRIOL
     Indication: HEREDITARY HYPOPHOSPHATAEMIC RICKETS
     Dosage: UNK
     Route: 065

REACTIONS (1)
  - Condition aggravated [Unknown]
